FAERS Safety Report 11660470 (Version 1)
Quarter: 2015Q4

REPORT INFORMATION
  Report Type: Spontaneous
  Country: US (occurrence: None)
  Receive Date: 20151023
  Receipt Date: 20151023
  Transmission Date: 20160304
  Serious: Yes (Hospitalization)
  Sender: FDA-Public Use
  Company Number: None

PATIENT
  Age: 74 Year
  Sex: Male
  Weight: 61.7 kg

DRUGS (2)
  1. SULFAMETHOXAZOLE/TRIMETHOPRIM [Suspect]
     Active Substance: SULFAMETHOXAZOLE\TRIMETHOPRIM
     Indication: PROSTATIC SPECIFIC ANTIGEN INCREASED
     Dosage: 800/160 MG BID PO
     Route: 048
     Dates: start: 20110629, end: 20110722
  2. SULFAMETHOXAZOLE/TRIMETHOPRIM [Suspect]
     Active Substance: SULFAMETHOXAZOLE\TRIMETHOPRIM
     Indication: PROSTATITIS
     Dosage: 800/160 MG BID PO
     Route: 048
     Dates: start: 20110629, end: 20110722

REACTIONS (3)
  - Electrocardiogram change [None]
  - Hyperkalaemia [None]
  - Acute kidney injury [None]

NARRATIVE: CASE EVENT DATE: 20110722
